FAERS Safety Report 6381558-2 (Version None)
Quarter: 2009Q3

REPORT INFORMATION
  Report Type: 
  Country: None (occurrence: None)
  Receive Date: 20090925
  Receipt Date: 20090911
  Transmission Date: 20100115
  Serious: Yes (Other)
  Sender: FDA-Public Use
  Company Number: 001735

PATIENT
  Age: 60 Year
  Sex: Male

DRUGS (2)
  1. CO-CODAMOL (CO-CODAMOL) [Suspect]
     Indication: OSTEOARTHRITIS
     Dosage: (ORAL)
     Route: 048
     Dates: start: 19980101
  2. LYRICA [Suspect]
     Indication: NEURALGIA
     Dosage: (ORAL)
     Route: 048
     Dates: start: 20081203, end: 20090313

REACTIONS (2)
  - ACQUIRED HAEMOPHILIA [None]
  - NEURALGIA [None]
